FAERS Safety Report 7581411-2 (Version None)
Quarter: 2011Q2

REPORT INFORMATION
  Report Type: 
  Country: None (occurrence: None)
  Receive Date: 20110629
  Receipt Date: 20110616
  Transmission Date: 20111010
  Serious: Yes (Hospitalization, Other)
  Sender: FDA-Public Use
  Company Number: PHHY2011DE33593

PATIENT
  Age: 81 Year
  Sex: Male

DRUGS (11)
  1. BORTEZOMIB [Concomitant]
  2. HYDROCHLOROTHIAZID [Concomitant]
     Dosage: 12.5 MG, UNK
     Dates: start: 20101001
  3. ZOMETA [Suspect]
     Indication: PLASMACYTOMA
     Dates: end: 20100101
  4. PREDNISON GALEPHARM [Concomitant]
     Dates: start: 20090401, end: 20090901
  5. ASPIRIN [Concomitant]
     Dosage: 100 MG, UNK
     Dates: start: 20101001
  6. PANTOPRAZOLE [Concomitant]
     Dosage: 20 MG, UNK
     Dates: start: 20101001
  7. ZOMETA [Suspect]
     Dates: start: 20101001, end: 20110101
  8. MELPHALAN HYDROCHLORIDE [Concomitant]
     Dates: start: 20090401, end: 20090901
  9. LISINOPRIL [Concomitant]
     Dosage: 5 MG, UNK
     Dates: start: 20101001
  10. CARBAMAZEPIN ^GRY^ [Concomitant]
     Dosage: 600 MG, UNK
     Dates: start: 20101001
  11. PRAVASTATIN [Concomitant]
     Dosage: 20 MG, UNK
     Dates: start: 20101001

REACTIONS (14)
  - AORTIC VALVE INCOMPETENCE [None]
  - CONFUSIONAL STATE [None]
  - EPILEPSY [None]
  - CARDIAC HYPERTROPHY [None]
  - AMNESIA [None]
  - ELECTROENCEPHALOGRAM ABNORMAL [None]
  - HEMIPARESIS [None]
  - HYPOAESTHESIA [None]
  - DEPRESSED LEVEL OF CONSCIOUSNESS [None]
  - SOMNOLENCE [None]
  - LOW DENSITY LIPOPROTEIN INCREASED [None]
  - VOMITING [None]
  - SYNCOPE [None]
  - BLOOD PRESSURE INCREASED [None]
